FAERS Safety Report 5738004-9 (Version None)
Quarter: 2008Q2

REPORT INFORMATION
  Report Type: 
  Country: None (occurrence: None)
  Receive Date: 20080508
  Receipt Date: 20080211
  Transmission Date: 20081010
  Serious: Yes (Other)
  Sender: FDA-Public Use
  Company Number: 45178

PATIENT
  Sex: Female
  Weight: 67 kg

DRUGS (3)
  1. ACYCLOVIR FOR INJ [Suspect]
     Indication: HERPES ZOSTER
     Dosage: 680MG - EVERY 8 HOURS - IV
     Route: 042
     Dates: start: 20080126
  2. VALTREX [Concomitant]
  3. NORVASC [Concomitant]

REACTIONS (1)
  - NEPHROPATHY TOXIC [None]
